FAERS Safety Report 5404018-1 (Version None)
Quarter: 2007Q3

REPORT INFORMATION
  Report Type: 
  Country: None (occurrence: None)
  Receive Date: 20070730
  Receipt Date: 20070709
  Transmission Date: 20080115
  Serious: Yes (Hospitalization)
  Sender: FDA-Public Use
  Company Number: 6035431

PATIENT
  Age: 20 Year
  Sex: Male

DRUGS (1)
  1. AMLODIPINE [Suspect]
     Indication: DRUG USE FOR UNKNOWN INDICATION
     Dosage: 400 MG (10 MG, 40 IN 1 TOTAL); ORAL
     Route: 048

REACTIONS (16)
  - ABDOMINAL PAIN UPPER [None]
  - CHEST X-RAY ABNORMAL [None]
  - CREPITATIONS [None]
  - ELECTROCARDIOGRAM QRS COMPLEX SHORTENED [None]
  - HYPOTENSION [None]
  - HYPOXIA [None]
  - NEUTROPHIL PERCENTAGE INCREASED [None]
  - NON-CARDIOGENIC PULMONARY OEDEMA [None]
  - OVERDOSE [None]
  - RESPIRATORY FAILURE [None]
  - SINUS TACHYCARDIA [None]
  - SPUTUM DISCOLOURED [None]
  - SUICIDE ATTEMPT [None]
  - TACHYPNOEA [None]
  - VOMITING [None]
  - WHITE BLOOD CELL COUNT INCREASED [None]
